FAERS Safety Report 7336095-5 (Version None)
Quarter: 2011Q1

REPORT INFORMATION
  Report Type: 
  Country: None (occurrence: None)
  Receive Date: 20110307
  Receipt Date: 20110302
  Transmission Date: 20110831
  Serious: Yes (Other)
  Sender: FDA-Public Use
  Company Number: US-PFIZER INC-2011046531

PATIENT
  Sex: Female
  Weight: 56.689 kg

DRUGS (1)
  1. CHAPSTICK LIP BALM [Suspect]
     Indication: LIP DRY
     Dosage: UNK
     Dates: end: 20110101

REACTIONS (1)
  - COELIAC DISEASE [None]
